FAERS Safety Report 20199665 (Version 1)
Quarter: 2021Q4

REPORT INFORMATION
  Report Type: Spontaneous
  Country: US (occurrence: US)
  Receive Date: 20211217
  Receipt Date: 20211217
  Transmission Date: 20220304
  Serious: No
  Sender: FDA-Public Use
  Company Number: US-BAUSCH-BL-2021-041188

PATIENT
  Age: 27 Year
  Sex: Female
  Weight: 54.480 kg

DRUGS (2)
  1. TRULANCE [Suspect]
     Active Substance: PLECANATIDE
     Indication: Irritable bowel syndrome
     Dosage: STARTED 8 DAYS AGO AND STOPPED THE PRODUCT 3 DAYS AGO
     Route: 048
     Dates: start: 20211203, end: 20211208
  2. LAMICTAL [Concomitant]
     Active Substance: LAMOTRIGINE
     Indication: Product used for unknown indication
     Dosage: 200 QD
     Route: 048

REACTIONS (7)
  - Cough [Unknown]
  - Oropharyngeal discomfort [Unknown]
  - Constipation [Unknown]
  - Symptom recurrence [Unknown]
  - Drug hypersensitivity [Unknown]
  - Dizziness [Unknown]
  - Nausea [Unknown]

NARRATIVE: CASE EVENT DATE: 20211201
